FAERS Safety Report 10370138 (Version 2)
Quarter: 2015Q1

REPORT INFORMATION
  Report Type: Spontaneous
  Country: DK (occurrence: DK)
  Receive Date: 20140808
  Receipt Date: 20150113
  Transmission Date: 20150720
  Serious: Yes (Death, Life-Threatening, Hospitalization)
  Sender: FDA-Public Use
  Company Number: DK-BRISTOL-MYERS SQUIBB COMPANY-21253927

PATIENT
  Age: 84 Year
  Sex: Female

DRUGS (13)
  1. RAMIPRIL. [Concomitant]
     Active Substance: RAMIPRIL
     Indication: HYPERTENSION
     Dosage: UNK
  2. AMLODIPINE [Concomitant]
     Active Substance: AMLODIPINE BESYLATE
  3. ELIQUIS [Suspect]
     Active Substance: APIXABAN
     Indication: ATRIAL FIBRILLATION
  4. ALENDRONATE [Concomitant]
     Active Substance: ALENDRONATE SODIUM
     Dosage: UNK
  5. HYDROXYCOBALAMIN [Concomitant]
     Dosage: UNK
  6. ALENDRONAT ^ARROW^ [Concomitant]
     Indication: OSTEOPOROSIS
     Route: 048
     Dates: start: 20120913, end: 20140724
  7. RAMIPRIL. [Concomitant]
     Active Substance: RAMIPRIL
     Dosage: STYRKE: 5+25MG
     Route: 048
     Dates: start: 20121220, end: 20140724
  8. ELIQUIS [Suspect]
     Active Substance: APIXABAN
     Indication: CEREBROVASCULAR ACCIDENT PROPHYLAXIS
     Dosage: STYRKE: 2,5 MG
     Route: 048
     Dates: start: 20140623, end: 20140717
  9. STESOLID [Concomitant]
     Active Substance: DIAZEPAM
     Dosage: UNK
  10. IMOCLONE [Concomitant]
     Active Substance: ZOPICLONE
     Dosage: UNK
  11. KALEORID [Concomitant]
     Active Substance: POTASSIUM CHLORIDE
     Dosage: UNK
  12. AMLODIPIN ^ACTAVIS^ [Concomitant]
     Indication: HYPERTENSION
     Route: 048
     Dates: start: 20121108, end: 20140701
  13. VIBEDEN [Concomitant]
     Indication: VITAMIN B12 DEFICIENCY
     Dosage: INJEKTION HVER 3 M?NED
     Dates: start: 20120220, end: 20140808

REACTIONS (3)
  - Death [Fatal]
  - International normalised ratio increased [Unknown]
  - General physical health deterioration [Unknown]

NARRATIVE: CASE EVENT DATE: 20140716
